FAERS Safety Report 8230250-8 (Version None)
Quarter: 2012Q1

REPORT INFORMATION
  Report Type: 
  Country: None (occurrence: None)
  Receive Date: 20120321
  Receipt Date: 20120321
  Transmission Date: 20120608
  Serious: Yes (Other)
  Sender: FDA-Public Use
  Company Number: None

PATIENT
  Sex: Female
  Weight: 138.8007 kg

DRUGS (2)
  1. TOPIRAMATE [Suspect]
     Indication: ANXIETY DISORDER
     Dosage: 50 MG ONE TABLET BY MOUTH AT BEDTIME
     Route: 048
     Dates: start: 20120209, end: 20120217
  2. TOPIRAMATE [Suspect]
     Indication: AFFECTIVE DISORDER
     Dosage: 50 MG ONE TABLET BY MOUTH AT BEDTIME
     Route: 048
     Dates: start: 20120209, end: 20120217

REACTIONS (2)
  - ANGLE CLOSURE GLAUCOMA [None]
  - VISUAL IMPAIRMENT [None]
